FAERS Safety Report 16987710 (Version 1)
Quarter: 2019Q4

REPORT INFORMATION
  Report Type: Spontaneous
  Country: US (occurrence: US)
  Receive Date: 20191104
  Receipt Date: 20191104
  Transmission Date: 20200122
  Serious: No
  Sender: FDA-Public Use
  Company Number: US-AUROBINDO-AUR-APL-2019-027350

PATIENT
  Age: 74 Year
  Sex: Female

DRUGS (2)
  1. METOPROLOL TARTRATE FILM COATED TABLETS USP 25 MG [Suspect]
     Active Substance: METOPROLOL TARTRATE
     Indication: HYPERTENSION
     Dosage: 1 DOSAGE FORM, TWO TIMES A DAY
     Route: 048
     Dates: end: 2018
  2. METOPROLOL TARTRATE FILM COATED TABLETS USP 25 MG [Suspect]
     Active Substance: METOPROLOL TARTRATE
     Dosage: 2 DOSAGE FORM, TWO TIMES A DAY,2 OR 3 MONTHS AGO
     Route: 048
     Dates: end: 20190509

REACTIONS (1)
  - Tinnitus [Not Recovered/Not Resolved]
